FAERS Safety Report 16221537 (Version 3)
Quarter: 2020Q1

REPORT INFORMATION
  Report Type: Spontaneous
  Country: US (occurrence: US)
  Receive Date: 20190422
  Receipt Date: 20200312
  Transmission Date: 20200409
  Serious: Yes (Other)
  Sender: FDA-Public Use
  Company Number: US-CIPLA LTD.-2019US02006

PATIENT

DRUGS (4)
  1. BUPROPION. [Suspect]
     Active Substance: BUPROPION
     Indication: FOETAL ALCOHOL SYNDROME
     Dosage: 150 MILLIGRAM, QD
     Route: 048
     Dates: start: 201901
  2. BUSPAR [Concomitant]
     Active Substance: BUSPIRONE HYDROCHLORIDE
     Indication: FOETAL ALCOHOL SYNDROME
     Dosage: 30 MILLIGRAM, QD
     Route: 065
  3. GUANFACINE. [Concomitant]
     Active Substance: GUANFACINE
     Indication: FOETAL ALCOHOL SYNDROME
     Dosage: 1 MILLIGRAM, BID
     Route: 065
  4. CLONIDINE. [Concomitant]
     Active Substance: CLONIDINE
     Indication: FOETAL ALCOHOL SYNDROME
     Dosage: 25 MILLIGRAM, QD
     Route: 065

REACTIONS (4)
  - Product substitution issue [Unknown]
  - Feeling abnormal [Recovering/Resolving]
  - Self-injurious ideation [Recovering/Resolving]
  - Fear [Recovering/Resolving]
